FAERS Safety Report 18344935 (Version 2)
Quarter: 2020Q4

REPORT INFORMATION
  Report Type: Spontaneous
  Country: DE (occurrence: DE)
  Receive Date: 20201005
  Receipt Date: 20201028
  Transmission Date: 20210114
  Serious: Yes (Other)
  Sender: FDA-Public Use
  Company Number: DE-009507513-2010DEU000462

PATIENT
  Age: 59 Year
  Sex: Male
  Weight: 105 kg

DRUGS (3)
  1. PACLITAXEL. [Concomitant]
     Active Substance: PACLITAXEL
     Indication: NON-SMALL CELL LUNG CANCER
     Dosage: UNK
     Dates: start: 202003
  2. KEYTRUDA [Suspect]
     Active Substance: PEMBROLIZUMAB
     Indication: NON-SMALL CELL LUNG CANCER
     Dosage: 200 MILLIGRAM, Q3W
     Dates: start: 20200409
  3. CARBOPLATIN. [Concomitant]
     Active Substance: CARBOPLATIN
     Indication: NON-SMALL CELL LUNG CANCER
     Dosage: UNK
     Dates: start: 202003

REACTIONS (19)
  - Haematocrit abnormal [Unknown]
  - Mean cell volume abnormal [Unknown]
  - Thrombocytopenia [Not Recovered/Not Resolved]
  - C-reactive protein abnormal [Unknown]
  - Red blood cell abnormality [Unknown]
  - Blood lactate dehydrogenase abnormal [Unknown]
  - Blood sodium abnormal [Unknown]
  - Blood calcium abnormal [Unknown]
  - Eosinophil percentage abnormal [Unknown]
  - Glomerular filtration rate abnormal [Unknown]
  - Glycosylated haemoglobin increased [Unknown]
  - Lymphocyte morphology abnormal [Unknown]
  - Mean cell haemoglobin concentration abnormal [Unknown]
  - Monocyte percentage abnormal [Unknown]
  - Haemoglobin abnormal [Unknown]
  - Mean cell haemoglobin increased [Unknown]
  - Neutrophil percentage abnormal [Unknown]
  - Blood creatinine abnormal [Unknown]
  - Blood bilirubin abnormal [Unknown]

NARRATIVE: CASE EVENT DATE: 20200707
